FAERS Safety Report 5481933-4 (Version None)
Quarter: 2007Q4

REPORT INFORMATION
  Report Type: 
  Country: None (occurrence: None)
  Receive Date: 20071010
  Receipt Date: 20071008
  Transmission Date: 20080405
  Serious: Yes (Other)
  Sender: FDA-Public Use
  Company Number: US-MERCK-0710USA02264

PATIENT
  Age: 77 Year
  Sex: Female
  Weight: 70 kg

DRUGS (4)
  1. FOSAMAX [Suspect]
     Route: 048
  2. C.E.S. [Suspect]
     Route: 048
  3. VIOXX [Suspect]
     Route: 048
  4. TYLENOL (CAPLET) [Concomitant]
     Route: 065

REACTIONS (6)
  - BLOOD PRESSURE INCREASED [None]
  - CEREBROVASCULAR ACCIDENT [None]
  - COORDINATION ABNORMAL [None]
  - DYSPHAGIA [None]
  - GALLBLADDER DISORDER [None]
  - MUSCULAR WEAKNESS [None]
